FAERS Safety Report 11987852 (Version 1)
Quarter: 2016Q1

REPORT INFORMATION
  Report Type: Spontaneous
  Country: US (occurrence: None)
  Receive Date: 20160201
  Receipt Date: 20160201
  Transmission Date: 20160526
  Serious: No
  Sender: FDA-Public Use
  Company Number: None

PATIENT

DRUGS (2)
  1. STERILE WATER FOR INJECTION [Suspect]
     Active Substance: WATER
     Dosage: INJECTABLE, INJECTION, SINGLE DOSE VIAL 10 ML
  2. CALCIUM GLUCONATE CALCIUM GLUCONATE [Suspect]
     Active Substance: CALCIUM GLUCONATE
     Dosage: INJECTABLE, INJECTION, 10% (100MG/ML), SINGLE DOSE VIAL, 10 ML

REACTIONS (2)
  - Product label confusion [None]
  - Circumstance or information capable of leading to medication error [None]
